FAERS Safety Report 18117441 (Version 1)
Quarter: 2020Q3

REPORT INFORMATION
  Report Type: Spontaneous
  Country: NP (occurrence: NP)
  Receive Date: 20200805
  Receipt Date: 20200805
  Transmission Date: 20201103
  Serious: Yes (Other)
  Sender: FDA-Public Use
  Company Number: NP-SUN PHARMACEUTICAL INDUSTRIES LTD-2020RR-256354

PATIENT
  Age: 33 Year
  Sex: Male

DRUGS (6)
  1. NORADRENALINE [Suspect]
     Active Substance: NOREPINEPHRINE
     Indication: HYPOTENSION
     Dosage: UNK
     Route: 065
  2. DEXAMETHASONE. [Suspect]
     Active Substance: DEXAMETHASONE
     Indication: PRODUCT USED FOR UNKNOWN INDICATION
     Dosage: UNK
     Route: 065
  3. INSULIN [Suspect]
     Active Substance: INSULIN NOS
     Indication: DIABETES MELLITUS
     Dosage: 6?12 U/H
     Route: 065
  4. VASOPRESSIN. [Suspect]
     Active Substance: VASOPRESSIN
     Indication: HYPOTENSION
     Route: 065
  5. ADRENALINA [Suspect]
     Active Substance: EPINEPHRINE
     Indication: HYPOTENSION
     Dosage: UNK
     Route: 065
  6. ACETAZOLAMIDE. [Suspect]
     Active Substance: ACETAZOLAMIDE
     Indication: DYSPNOEA
     Dosage: 250 MILLIGRAM, QD, 8 TABLETS
     Route: 048

REACTIONS (4)
  - Overdose [Recovered/Resolved]
  - Treatment noncompliance [Unknown]
  - Drug ineffective [Unknown]
  - Diabetic ketoacidosis [Recovered/Resolved]
